FAERS Safety Report 25504538 (Version 1)
Quarter: 2025Q3

REPORT INFORMATION
  Report Type: Spontaneous
  Country: EU (occurrence: EU)
  Receive Date: 20250702
  Receipt Date: 20250702
  Transmission Date: 20251020
  Serious: Yes (Hospitalization)
  Sender: PFIZER
  Company Number: None

PATIENT
  Age: 87 Year
  Sex: Female
  Weight: 68.9 kg

DRUGS (14)
  1. LINEZOLID [Suspect]
     Active Substance: LINEZOLID
     Indication: Infection
     Dosage: 1200 MG, DAILY
     Route: 048
     Dates: start: 20250502, end: 20250502
  2. LINEZOLID [Suspect]
     Active Substance: LINEZOLID
     Dosage: 1200 MG, DAILY
     Route: 048
     Dates: start: 20250516, end: 20250609
  3. METHOTREXATE [Concomitant]
     Active Substance: METHOTREXATE
     Dates: end: 20250502
  4. FUROSEMIDE [Concomitant]
     Active Substance: FUROSEMIDE
  5. LERCANIDIPINE HYDROCHLORIDE [Concomitant]
     Active Substance: LERCANIDIPINE HYDROCHLORIDE
  6. TRAMADOL HYDROCHLORIDE [Concomitant]
     Active Substance: TRAMADOL HYDROCHLORIDE
  7. ACETAMINOPHEN [Concomitant]
     Active Substance: ACETAMINOPHEN
  8. HESPERIDIN [Concomitant]
     Active Substance: HESPERIDIN
  9. POLYETHYLENE GLYCOLS [Concomitant]
     Active Substance: POLYETHYLENE GLYCOLS
  10. FOLIC ACID [Concomitant]
     Active Substance: FOLIC ACID
  11. PREDNISONE [Concomitant]
     Active Substance: PREDNISONE
  12. ACIDE RISEDRONIQUE [Concomitant]
  13. CHOLECALCIFEROL [Concomitant]
     Active Substance: CHOLECALCIFEROL
  14. ESOMEPRAZOLE [Concomitant]
     Active Substance: ESOMEPRAZOLE

REACTIONS (1)
  - Anaemia macrocytic [Recovered/Resolved]

NARRATIVE: CASE EVENT DATE: 20250505
